FAERS Safety Report 18964262 (Version 2)
Quarter: 2022Q3

REPORT INFORMATION
  Report Type: Spontaneous
  Country: US (occurrence: US)
  Receive Date: 20210303
  Receipt Date: 20220909
  Transmission Date: 20221027
  Serious: Yes (Other)
  Sender: FDA-Public Use
  Company Number: US-BAYER-2021-091229

PATIENT
  Age: 11 Year
  Sex: Male

DRUGS (2)
  1. JIVI [Suspect]
     Active Substance: DAMOCTOCOG ALFA PEGOL
     Dosage: 2000 U
  2. JIVI [Suspect]
     Active Substance: DAMOCTOCOG ALFA PEGOL
     Dosage: 1 DOSE OF JIVI FOR LEFT ELBOW BLEED
     Dates: start: 20210219

REACTIONS (3)
  - Haemarthrosis [Recovered/Resolved]
  - Accident [None]
  - Off label use [None]

NARRATIVE: CASE EVENT DATE: 20210210
